FAERS Safety Report 19257686 (Version 1)
Quarter: 2021Q2

REPORT INFORMATION
  Report Type: Spontaneous
  Country: US (occurrence: US)
  Receive Date: 20210514
  Receipt Date: 20210514
  Transmission Date: 20210717
  Serious: Yes (Life-Threatening, Other)
  Sender: FDA-Public Use
  Company Number: NVSC2021US107735

PATIENT
  Age: 31 Year
  Sex: Female

DRUGS (1)
  1. LUTATHERA [Suspect]
     Active Substance: LUTETIUM OXODOTREOTIDE LU-177
     Indication: NEUROENDOCRINE TUMOUR
     Dosage: 7400 MBQ, ONCE/SINGLE (ONE SINGLE DOSE)
     Route: 042

REACTIONS (1)
  - Hepatic function abnormal [Not Recovered/Not Resolved]
